FAERS Safety Report 10213934 (Version 1)
Quarter: 2014Q2

REPORT INFORMATION
  Report Type: Spontaneous
  Country: US (occurrence: None)
  Receive Date: 20140602
  Receipt Date: 20140602
  Transmission Date: 20141212
  Serious: No
  Sender: FDA-Public Use
  Company Number: None

PATIENT
  Age: 40 Year
  Sex: Female
  Weight: 61.24 kg

DRUGS (1)
  1. MIRVASO 0.33% GALDERMA LABORATORIES [Suspect]
     Indication: ROSACEA
     Dosage: PEA SIZED DROP ONCE DAILY APPLIED TO A SURFACE, USUALLY THE SKIN
     Route: 061
     Dates: start: 20140529, end: 20140531

REACTIONS (4)
  - Erythema [None]
  - Flushing [None]
  - Feeling hot [None]
  - Tinnitus [None]
